FAERS Safety Report 8668959 (Version 2)
Quarter: 2012Q4

REPORT INFORMATION
  Report Type: 
  Country: IT (occurrence: IT)
  Receive Date: 20120717
  Receipt Date: 20120904
  Transmission Date: 20130627
  Serious: Yes (Death, Hospitalization, Other)
  Sender: FDA-Public Use
  Company Number: IT-GENZYME-CERZ-1002560

PATIENT
  Age: 60 Year
  Sex: Male
  Weight: 60 kg

DRUGS (1)
  1. CEREZYME [Suspect]
     Indication: GAUCHER^S DISEASE
     Route: 042

REACTIONS (9)
  - Sepsis [Fatal]
  - Perinephric abscess [Fatal]
  - Nephrolithiasis [Fatal]
  - Hydronephrosis [Fatal]
  - Pyelocaliectasis [Fatal]
  - Pneumonia [Fatal]
  - Dehydration [Fatal]
  - Asthenia [Fatal]
  - Hypophagia [Fatal]
